FAERS Safety Report 6395664-X (Version None)
Quarter: 2009Q4

REPORT INFORMATION
  Report Type: 
  Country: None (occurrence: None)
  Receive Date: 20091006
  Receipt Date: 20090921
  Transmission Date: 20100525
  Serious: Yes (Hospitalization)
  Sender: FDA-Public Use
  Company Number: 8052712

PATIENT
  Sex: Female
  Weight: 62.1 kg

DRUGS (4)
  1. KEPPRA [Suspect]
     Indication: CONVULSION
     Dosage: 2/D PO
     Route: 048
     Dates: end: 20090801
  2. VIMPAT [Concomitant]
     Indication: CONVULSION
     Dosage: 100 MG 2/D PO
     Route: 048
     Dates: start: 20090703, end: 20090814
  3. TOPAMAX [Concomitant]
  4. DILANTIN [Concomitant]

REACTIONS (4)
  - CONFUSIONAL STATE [None]
  - GRAND MAL CONVULSION [None]
  - PETIT MAL EPILEPSY [None]
  - SPEECH DISORDER [None]
